FAERS Safety Report 16284685 (Version 1)
Quarter: 2019Q2

REPORT INFORMATION
  Report Type: Spontaneous
  Country: EG (occurrence: EG)
  Receive Date: 20190508
  Receipt Date: 20190508
  Transmission Date: 20190711
  Serious: Yes (Hospitalization, Disabling, Other)
  Sender: FDA-Public Use
  Company Number: EG-SA-2019SA118355

PATIENT
  Age: 24 Year
  Sex: Male
  Weight: 76 kg

DRUGS (2)
  1. CEREZYME [Suspect]
     Active Substance: IMIGLUCERASE
     Dosage: 30 MG/KG, QW
     Route: 041
     Dates: start: 2000
  2. CEREZYME [Suspect]
     Active Substance: IMIGLUCERASE
     Indication: GAUCHER^S DISEASE TYPE I
     Dosage: 60 MG/KG, QOW
     Route: 041
     Dates: start: 2000

REACTIONS (19)
  - Erythema [Recovered/Resolved with Sequelae]
  - Osteomyelitis [Recovered/Resolved with Sequelae]
  - Surgery [Recovering/Resolving]
  - Inflammation [Recovering/Resolving]
  - Erythema [Recovering/Resolving]
  - Infection [Recovered/Resolved with Sequelae]
  - X-ray abnormal [Unknown]
  - Bone infarction [Recovered/Resolved with Sequelae]
  - Swelling [Recovered/Resolved with Sequelae]
  - Feeling hot [Recovering/Resolving]
  - Red blood cell sedimentation rate abnormal [Unknown]
  - Condition aggravated [Recovered/Resolved with Sequelae]
  - Chitotriosidase increased [Unknown]
  - Walking aid user [Recovered/Resolved with Sequelae]
  - Pain in extremity [Recovered/Resolved with Sequelae]
  - Nuclear magnetic resonance imaging abnormal [Recovered/Resolved with Sequelae]
  - C-reactive protein increased [Recovered/Resolved]
  - Feeling hot [Recovered/Resolved with Sequelae]
  - Swelling [Recovering/Resolving]

NARRATIVE: CASE EVENT DATE: 20181019
